FAERS Safety Report 9832999 (Version 2)
Quarter: 2014Q1

REPORT INFORMATION
  Report Type: Other
  Country: DK (occurrence: AU)
  Receive Date: 20140121
  Receipt Date: 20140131
  Transmission Date: 20141002
  Serious: Yes (Death)
  Sender: FDA-Public Use
  Company Number: AU-FRI-1000052949

PATIENT
  Age: 30 Year
  Sex: Male

DRUGS (9)
  1. CITALOPRAM [Suspect]
  2. CYMBALTA [Interacting]
  3. COLCHICINE [Interacting]
  4. DIAZEPAM [Interacting]
  5. MIDAZOLAM [Interacting]
  6. MORPHINE HYDROCHLORIDE [Interacting]
  7. OXYCODONE HYDROCHLORIDE [Interacting]
  8. PARACETAMOL [Interacting]
  9. ZOPICLONE [Interacting]

REACTIONS (3)
  - Toxicity to various agents [Fatal]
  - Cardiomegaly [Not Recovered/Not Resolved]
  - Drug interaction [Fatal]
